FAERS Safety Report 13870425 (Version 4)
Quarter: 2017Q3

REPORT INFORMATION
  Report Type: Report from Study
  Country: BR (occurrence: BR)
  Receive Date: 20170815
  Receipt Date: 20170929
  Transmission Date: 20171127
  Serious: Yes (Life-Threatening, Other)
  Sender: FDA-Public Use
  Company Number: PHHY2017BR119125

PATIENT
  Sex: Female
  Weight: 90 kg

DRUGS (5)
  1. ATENOLOL. [Concomitant]
     Active Substance: ATENOLOL
     Indication: HYPERTENSION
     Dosage: 100 MG, QD
     Route: 048
  2. METFORMIN [Suspect]
     Active Substance: METFORMIN HYDROCHLORIDE
     Indication: PRODUCT USED FOR UNKNOWN INDICATION
     Dosage: UNK
     Route: 065
  3. GALVUS MET [Suspect]
     Active Substance: METFORMIN HYDROCHLORIDE\VILDAGLIPTIN
     Indication: BLOOD GLUCOSE INCREASED
     Dosage: 1 DF (850/50 MG), BID
     Route: 048
     Dates: start: 201703
  4. HYDROCHLOROTHIAZIDE. [Concomitant]
     Active Substance: HYDROCHLOROTHIAZIDE
     Indication: HYPERTENSION
     Dosage: 50 MG, QD
     Route: 048
  5. LOSARTAN POTASSIUM. [Concomitant]
     Active Substance: LOSARTAN POTASSIUM
     Indication: HYPERTENSION
     Dosage: 5 MG, QD
     Route: 048

REACTIONS (17)
  - Decreased appetite [Not Recovered/Not Resolved]
  - Weight increased [Unknown]
  - Depressed mood [Not Recovered/Not Resolved]
  - Anxiety [Unknown]
  - Hyperhidrosis [Unknown]
  - Malaise [Not Recovered/Not Resolved]
  - Nervousness [Unknown]
  - Dizziness [Not Recovered/Not Resolved]
  - Feeling abnormal [Unknown]
  - Weight decreased [Unknown]
  - Nausea [Not Recovered/Not Resolved]
  - Headache [Not Recovered/Not Resolved]
  - Stress [Unknown]
  - Blood pressure increased [Unknown]
  - Blood glucose fluctuation [Not Recovered/Not Resolved]
  - Drug ineffective [Unknown]
  - Malabsorption [Unknown]
